FAERS Safety Report 5289148-X (Version None)
Quarter: 2007Q1

REPORT INFORMATION
  Report Type: 
  Country: None (occurrence: None)
  Receive Date: 20070116
  Receipt Date: 20060215
  Transmission Date: 20070707
  Serious: No
  Sender: FDA-Public Use
  Company Number: FEI2006-0227

PATIENT
  Age: 27 Year
  Sex: Female
  Weight: 77.1115 kg

DRUGS (3)
  1. INTRAUTERINE COPPER CONTRACEPTIVE [Suspect]
     Indication: CONTRACEPTION
     Dosage: INTRA-UTERINE
     Route: 015
     Dates: start: 20060119, end: 20060208
  2. LEXAPRO (ESCITALOPRAM) (UNKNOWN) [Concomitant]
  3. WELLBUTRIN SR (BUPROPION HYDROCHLORIDE) (TABLETS) [Concomitant]

REACTIONS (4)
  - ABDOMINAL PAIN [None]
  - BRONCHITIS [None]
  - CANDIDIASIS [None]
  - UTERINE PERFORATION [None]
